FAERS Safety Report 4395494-4 (Version None)
Quarter: 2004Q3

REPORT INFORMATION
  Report Type: 
  Country: None (occurrence: None)
  Receive Date: 20040708
  Receipt Date: 20040630
  Transmission Date: 20050211
  Serious: Yes (Hospitalization, Other)
  Sender: FDA-Public Use
  Company Number: 2004221761US

PATIENT
  Age: 83 Year
  Sex: Male
  Weight: 88 kg

DRUGS (9)
  1. BEXTRA [Suspect]
     Indication: PAIN IN EXTREMITY
     Dosage: ORAL
     Route: 048
     Dates: start: 20040311, end: 20040317
  2. DIGOXIN [Concomitant]
  3. VITAMIN C [Concomitant]
  4. E-VITAMIN [Concomitant]
  5. BETAPACK [Concomitant]
  6. ASPIRIN [Concomitant]
  7. BVASOTEC [Concomitant]
  8. NEURONTIN [Concomitant]
  9. ACTOS [Concomitant]

REACTIONS (4)
  - DYSPNOEA [None]
  - PAIN [None]
  - RASH ERYTHEMATOUS [None]
  - RASH PRURITIC [None]
